FAERS Safety Report 25037474 (Version 1)
Quarter: 2025Q1

REPORT INFORMATION
  Report Type: Report from Study
  Country: US (occurrence: US)
  Receive Date: 20250304
  Receipt Date: 20250304
  Transmission Date: 20250409
  Serious: Yes (Other)
  Sender: UCB
  Company Number: US-UCBSA-2025000512

PATIENT
  Age: 56 Year
  Sex: Female

DRUGS (1)
  1. BIMEKIZUMAB [Suspect]
     Active Substance: BIMEKIZUMAB
     Indication: Product used for unknown indication
     Dosage: 160 MILLIGRAM, EV 4 WEEKS
     Route: 058
     Dates: start: 20241204

REACTIONS (5)
  - Lower respiratory tract infection [Not Recovered/Not Resolved]
  - Fatigue [Recovered/Resolved]
  - Influenza [Recovered/Resolved]
  - Dry mouth [Not Recovered/Not Resolved]
  - Anxiety [Not Recovered/Not Resolved]

NARRATIVE: CASE EVENT DATE: 20241204
